FAERS Safety Report 7112105-5 (Version None)
Quarter: 2010Q4

REPORT INFORMATION
  Report Type: 
  Country: None (occurrence: None)
  Receive Date: 20101119
  Receipt Date: 20100111
  Transmission Date: 20110411
  Serious: No
  Sender: FDA-Public Use
  Company Number: A0814017A

PATIENT
  Age: 95 Year
  Sex: Male

DRUGS (5)
  1. AVODART [Suspect]
     Dosage: 1CAP PER DAY
     Route: 048
     Dates: start: 20091015, end: 20091025
  2. RHINOCORT [Concomitant]
  3. PULMICORT [Concomitant]
  4. POTASSIUM CHLORIDE [Concomitant]
  5. FLOMAX [Concomitant]

REACTIONS (2)
  - ERYTHEMA [None]
  - RASH [None]
